FAERS Safety Report 19381308 (Version 1)
Quarter: 2021Q2

REPORT INFORMATION
  Report Type: Spontaneous
  Country: DE (occurrence: DE)
  Receive Date: 20210607
  Receipt Date: 20210607
  Transmission Date: 20210717
  Serious: Yes (Hospitalization)
  Sender: FDA-Public Use
  Company Number: DE-ACCORD-227012

PATIENT
  Age: 72 Year
  Sex: Female

DRUGS (12)
  1. TILIDINE/TILIDINE HYDROCHLORIDE [Concomitant]
     Dosage: 4?50 MG,UP TO 2X1
  2. RIFAMPICIN/RIFAMPICIN SODIUM [Suspect]
     Active Substance: RIFAMPIN
     Indication: PRODUCT USED FOR UNKNOWN INDICATION
     Dosage: 450 MG, 1?0?1?0
  3. COTRIMOXAZOL AL [Suspect]
     Active Substance: SULFAMETHOXAZOLE\TRIMETHOPRIM
     Indication: PRODUCT USED FOR UNKNOWN INDICATION
     Dosage: 800?160 MG, 1?0?1?0
  4. TORASEMIDE/TORASEMIDE SODIUM [Suspect]
     Active Substance: TORSEMIDE
     Indication: PRODUCT USED FOR UNKNOWN INDICATION
     Dosage: 10 MG, 1?0?0?0
  5. EFEROX 50 [Concomitant]
     Dosage: 50 UG, 1?0?0?0
  6. ATORVASTATIN/ATORVASTATIN CALCIUM [Concomitant]
     Active Substance: ATORVASTATIN CALCIUM
     Dosage: 40 MG, 0?0?1?0
  7. PANTOPRAZOLE [Concomitant]
     Active Substance: PANTOPRAZOLE
     Dosage: 20 MG, 1?0?0?0
  8. METOPROLOL. [Suspect]
     Active Substance: METOPROLOL
     Indication: PRODUCT USED FOR UNKNOWN INDICATION
     Dosage: 47.5 MG, 2?0?1?0
  9. ASS 100 [Suspect]
     Active Substance: ASPIRIN
     Indication: PRODUCT USED FOR UNKNOWN INDICATION
     Dosage: 100 MG, 0?1?0?0
  10. CANDESARTAN/CANDESARTAN CILEXETIL [Concomitant]
     Active Substance: CANDESARTAN
     Dosage: 8 MG, 0.5?0?0?0
  11. APIXABAN [Suspect]
     Active Substance: APIXABAN
     Indication: PRODUCT USED FOR UNKNOWN INDICATION
     Dosage: 5 MG, 1?0?1?0
  12. SPIRONOLACTONE. [Suspect]
     Active Substance: SPIRONOLACTONE
     Indication: PRODUCT USED FOR UNKNOWN INDICATION
     Dosage: 50 MG, 0.5?0?0?0

REACTIONS (10)
  - Labelled drug-drug interaction medication error [Unknown]
  - Breast discomfort [Unknown]
  - Dyspnoea [Unknown]
  - Product monitoring error [Unknown]
  - Anaemia [Unknown]
  - Drug interaction [Unknown]
  - Retching [Unknown]
  - Renal impairment [Unknown]
  - Medication error [Unknown]
  - Tachycardia [Unknown]
